FAERS Safety Report 17225861 (Version 1)
Quarter: 2020Q1

REPORT INFORMATION
  Report Type: Spontaneous
  Country: NL (occurrence: NL)
  Receive Date: 20200102
  Receipt Date: 20200102
  Transmission Date: 20200409
  Serious: Yes (Life-Threatening)
  Sender: FDA-Public Use
  Company Number: NL-MYLANLABS-2019M1131676

PATIENT
  Age: 77 Year
  Sex: Male
  Weight: 87 kg

DRUGS (11)
  1. FUROSEMIDE. [Concomitant]
     Active Substance: FUROSEMIDE
     Dosage: 1 X PER DAG 1 STUK
     Dates: start: 20030106
  2. MACROGOL [Concomitant]
     Active Substance: POLYETHYLENE GLYCOLS
     Dosage: 1 X PER DAG 1 STUK
  3. PARACETAMOL [Concomitant]
     Active Substance: ACETAMINOPHEN
     Dosage: ZO NODIG 4 X PER DAG 2 STUKS
  4. ENALAPRIL [Concomitant]
     Active Substance: ENALAPRIL
     Dosage: 2 X PER DAG 1 STUK. START 10MG: 20-02-2012. START 20MG: 24-02-2012
     Dates: start: 20120220
  5. AMIODARONE [Suspect]
     Active Substance: AMIODARONE
     Indication: VENTRICULAR TACHYCARDIA
     Dosage: 2X PER DAG 1 STUK
     Route: 048
     Dates: start: 20170531
  6. ACETYLSALICYLZUUR [Concomitant]
     Active Substance: ASPIRIN
     Dosage: 1 X PER DAG 1 STUK
     Dates: start: 20120210
  7. METOPROLOL SUCCINATE. [Concomitant]
     Active Substance: METOPROLOL SUCCINATE
     Dosage: 1 X PER DAG 1 STUK. START 75MG: 18-02-2012. DOSERING NAAR 100MG SINDS: 19-02-2012
     Dates: start: 20120218
  8. RIVAROXABAN [Concomitant]
     Active Substance: RIVAROXABAN
     Dosage: 2 X PER DAG 1 STUK
     Dates: start: 20160429
  9. PANTOPRAZOL                        /01263201/ [Concomitant]
     Active Substance: PANTOPRAZOLE
     Dosage: 1 X PER DAG 1 STUK
     Dates: start: 20120219
  10. ROSUVASTATINE                      /01588601/ [Concomitant]
     Active Substance: ROSUVASTATIN
     Dosage: 1 X PER DAG 1 STUK
     Dates: start: 20120210
  11. LEVOTHYROXINE SODIUM. [Concomitant]
     Active Substance: LEVOTHYROXINE SODIUM
     Dosage: 1 X PER DAG 1 STUK
     Dates: start: 20190709

REACTIONS (2)
  - Dyspnoea [Recovering/Resolving]
  - Acute respiratory failure [Recovering/Resolving]

NARRATIVE: CASE EVENT DATE: 20190826
